FAERS Safety Report 22225817 (Version 3)
Quarter: 2024Q1

REPORT INFORMATION
  Report Type: Spontaneous
  Country: IT (occurrence: IT)
  Receive Date: 20230418
  Receipt Date: 20240111
  Transmission Date: 20240410
  Serious: Yes (Other)
  Sender: FDA-Public Use
  Company Number: IT-CELLTRION INC.-2022IT022295

PATIENT

DRUGS (34)
  1. RITUXIMAB [Suspect]
     Active Substance: RITUXIMAB
     Indication: Diffuse large B-cell lymphoma
     Dosage: UNK,UNK,  UNKNOWN FREQUENCY
     Route: 042
     Dates: start: 20220324, end: 20220329
  2. RITUXIMAB [Suspect]
     Active Substance: RITUXIMAB
     Dosage: UNK, UNK, UNKNOWN FREQUENCY
     Route: 042
     Dates: start: 20220502, end: 20220531
  3. RITUXIMAB [Suspect]
     Active Substance: RITUXIMAB
     Dosage: UNK, UNK, UNKNOWN FREQUENCY
     Route: 042
     Dates: start: 20220617, end: 20220624
  4. RITUXIMAB [Suspect]
     Active Substance: RITUXIMAB
     Dosage: UNK, UNK, UNKNOWN FREQ.
     Route: 042
     Dates: start: 20220617, end: 20220624
  5. RITUXIMAB [Suspect]
     Active Substance: RITUXIMAB
     Dosage: UNK, UNK, UNKNOWN FREQ.
     Route: 042
     Dates: start: 20220502, end: 20220531
  6. RITUXIMAB [Suspect]
     Active Substance: RITUXIMAB
     Dosage: UNK, UNK,  UNKNOWN FREQ.
     Route: 042
     Dates: start: 20220324, end: 20220329
  7. VINCRISTINE [Suspect]
     Active Substance: VINCRISTINE
     Indication: Diffuse large B-cell lymphoma
     Dosage: UNK, UNKNOWN FREQUENCY
     Route: 065
     Dates: start: 20220324, end: 20220329
  8. VINCRISTINE [Suspect]
     Active Substance: VINCRISTINE
     Dosage: UNK, UNKNOWN FREQUENCY
     Route: 065
     Dates: start: 20220502, end: 20220531
  9. VINCRISTINE [Suspect]
     Active Substance: VINCRISTINE
     Dosage: UNK, UNK, UNKNOWN FREQ.
     Route: 065
     Dates: start: 20220324, end: 20220329
  10. IFOSFAMIDE [Suspect]
     Active Substance: IFOSFAMIDE
     Indication: Diffuse large B-cell lymphoma
     Dosage: UNK, UNK UNKNOWN FREQUENCY
     Route: 065
     Dates: start: 20220617, end: 20220624
  11. IFOSFAMIDE [Suspect]
     Active Substance: IFOSFAMIDE
     Dosage: UNK, UNK UNKNOWN FREQ.
     Route: 065
     Dates: start: 20220617, end: 20220624
  12. METHOTREXATE [Suspect]
     Active Substance: METHOTREXATE
     Indication: Diffuse large B-cell lymphoma
     Dosage: UNK, UNKNOWN FREQUENCY
  13. METHOTREXATE [Suspect]
     Active Substance: METHOTREXATE
     Dosage: UNK
     Route: 065
  14. METHOTREXATE [Suspect]
     Active Substance: METHOTREXATE
     Dosage: UNK, UNK, UNKNOWN FREQ.
     Route: 065
  15. PREDNISONE [Suspect]
     Active Substance: PREDNISONE
     Indication: Diffuse large B-cell lymphoma
     Dosage: UNK, UNKNOWN FREQUENCY
     Route: 065
     Dates: start: 20220324, end: 20220329
  16. PREDNISONE [Suspect]
     Active Substance: PREDNISONE
     Dosage: UNK, UNK, UNKNOWN FREQ.
     Route: 065
     Dates: start: 20220324, end: 20220329
  17. POLATUZUMAB VEDOTIN [Suspect]
     Active Substance: POLATUZUMAB VEDOTIN
     Indication: Diffuse large B-cell lymphoma
     Dosage: UNK, UNK UNKNOWN FREQUENCY
  18. POLATUZUMAB VEDOTIN [Suspect]
     Active Substance: POLATUZUMAB VEDOTIN
     Dosage: UNK
     Route: 065
  19. POLATUZUMAB VEDOTIN [Suspect]
     Active Substance: POLATUZUMAB VEDOTIN
     Dosage: UNK, UNK UNKNOWN FREQ.
     Route: 065
  20. CYTARABINE [Suspect]
     Active Substance: CYTARABINE
     Indication: Diffuse large B-cell lymphoma
     Dosage: UNK
     Route: 065
     Dates: start: 20220617, end: 20220624
  21. CYTARABINE [Suspect]
     Active Substance: CYTARABINE
     Dosage: UNK, UNK, UNKNOWN FREQ.
     Route: 065
     Dates: start: 20220617, end: 20220624
  22. CYCLOPHOSPHAMIDE [Suspect]
     Active Substance: CYCLOPHOSPHAMIDE
     Indication: Diffuse large B-cell lymphoma
     Dosage: UNK, UNK, UNKNOWN FREQUENCY
     Route: 065
     Dates: start: 20220324, end: 20220329
  23. CYCLOPHOSPHAMIDE [Suspect]
     Active Substance: CYCLOPHOSPHAMIDE
     Dosage: UNK,UNK, UNKNOWN FREQUENCY
     Route: 065
     Dates: start: 20220502, end: 20220531
  24. CYCLOPHOSPHAMIDE [Suspect]
     Active Substance: CYCLOPHOSPHAMIDE
     Dosage: UNK,UNK, UNKNOWN FREQ.
     Route: 065
     Dates: start: 20220502, end: 20220531
  25. BENDAMUSTINE HYDROCHLORIDE [Suspect]
     Active Substance: BENDAMUSTINE HYDROCHLORIDE
     Indication: Diffuse large B-cell lymphoma
     Dosage: UNK, CYCLIC
     Route: 042
  26. BENDAMUSTINE HYDROCHLORIDE [Suspect]
     Active Substance: BENDAMUSTINE HYDROCHLORIDE
     Dosage: UNK
  27. ETOPOSIDE PHOSPHATE [Suspect]
     Active Substance: ETOPOSIDE PHOSPHATE
     Indication: Diffuse large B-cell lymphoma
     Dosage: UNK, UNKNOWN FREQUENCY
     Route: 065
     Dates: start: 20220324, end: 20220329
  28. ETOPOSIDE PHOSPHATE [Suspect]
     Active Substance: ETOPOSIDE PHOSPHATE
     Dosage: UNK, UNK, UNKNOWN FREQ.
     Route: 065
     Dates: start: 20220324, end: 20220329
  29. DOXORUBICIN [Suspect]
     Active Substance: DOXORUBICIN
     Indication: Diffuse large B-cell lymphoma
     Dosage: UNK, UNKNOWN FREQUENCY
     Route: 065
     Dates: start: 20220324, end: 20220329
  30. DOXORUBICIN [Suspect]
     Active Substance: DOXORUBICIN
     Dosage: UNK, UNKNOWN FREQUENCY
     Route: 065
     Dates: start: 20220502, end: 20220531
  31. DOXORUBICIN [Suspect]
     Active Substance: DOXORUBICIN
     Dosage: UNK, UNK, UNKNOWN FREQ.
     Route: 065
     Dates: start: 20220502, end: 20220531
  32. DOXORUBICIN [Suspect]
     Active Substance: DOXORUBICIN
     Dosage: UNK, UNK, UNKNOWN FREQ.
     Route: 065
     Dates: start: 20220324, end: 20220329
  33. BENDAMUSTINE HYDROCHLORIDE [Suspect]
     Active Substance: BENDAMUSTINE HYDROCHLORIDE
     Indication: Diffuse large B-cell lymphoma
     Dosage: UNK, CYCLIC
     Route: 042
  34. BENDAMUSTINE HYDROCHLORIDE [Suspect]
     Active Substance: BENDAMUSTINE HYDROCHLORIDE
     Dosage: UNK, UNK, CYCLIC
     Route: 042

REACTIONS (3)
  - Malignant neoplasm progression [Unknown]
  - Blood lactate dehydrogenase increased [Unknown]
  - Off label use [Unknown]
